FAERS Safety Report 5330539-6 (Version None)
Quarter: 2007Q2

REPORT INFORMATION
  Report Type: 
  Country: None (occurrence: None)
  Receive Date: 20070516
  Receipt Date: 20070510
  Transmission Date: 20071010
  Serious: Yes (Life-Threatening)
  Sender: FDA-Public Use
  Company Number: 2007-158454-NL

PATIENT
  Age: 83 Year
  Sex: Female

DRUGS (7)
  1. MIRTAZAPINE [Suspect]
     Indication: DEPRESSION
     Dosage: 45 MG QD
     Route: 048
     Dates: start: 20070101, end: 20070424
  2. SPIRONOLACTONE [Concomitant]
  3. METOPROLOL SUCCINATE [Concomitant]
  4. ENALAPRIL MALEATE [Concomitant]
  5. FELODIPINE [Concomitant]
  6. RISPERIDONE [Concomitant]
  7. LORAZEPAM [Concomitant]

REACTIONS (3)
  - HYPONATRAEMIA [None]
  - MASKED FACIES [None]
  - MUSCULOSKELETAL STIFFNESS [None]
